FAERS Safety Report 9928274 (Version 1)
Quarter: 2014Q1

REPORT INFORMATION
  Report Type: Spontaneous
  Country: IT (occurrence: IT)
  Receive Date: 20140227
  Receipt Date: 20140227
  Transmission Date: 20141002
  Serious: Yes (Hospitalization)
  Sender: FDA-Public Use
  Company Number: IT-SA-2014SA019050

PATIENT
  Age: 66 Year
  Sex: Male

DRUGS (3)
  1. PLAVIX [Suspect]
     Indication: MYOCARDIAL ISCHAEMIA
     Route: 048
     Dates: start: 20130101, end: 20131123
  2. CARDIOASPIRIN [Suspect]
     Indication: MYOCARDIAL ISCHAEMIA
     Route: 048
     Dates: start: 20130101, end: 20131123
  3. TAREG [Concomitant]
     Route: 048

REACTIONS (3)
  - Haematemesis [Unknown]
  - Vertigo [Unknown]
  - Vomiting [Unknown]
